FAERS Safety Report 17468098 (Version 1)
Quarter: 2020Q1

REPORT INFORMATION
  Report Type: Spontaneous
  Country: RO (occurrence: RO)
  Receive Date: 20200227
  Receipt Date: 20200227
  Transmission Date: 20200409
  Serious: Yes (Other)
  Sender: FDA-Public Use
  Company Number: RO-PFIZER INC-2020077511

PATIENT
  Age: 19 Year
  Sex: Female

DRUGS (3)
  1. METHYLPREDNISOLONE. [Suspect]
     Active Substance: METHYLPREDNISOLONE
     Indication: VISUAL IMPAIRMENT
     Dosage: 32 MG, DAILY
  2. METHYLPREDNISOLONE. [Suspect]
     Active Substance: METHYLPREDNISOLONE
     Dosage: 16 MG, DAILY
  3. METHYLPREDNISOLONE. [Suspect]
     Active Substance: METHYLPREDNISOLONE
     Indication: PHOTOPHOBIA
     Dosage: 12 MG, DAILY

REACTIONS (6)
  - Visual impairment [Unknown]
  - Retinal oedema [Recovering/Resolving]
  - Product use in unapproved indication [Unknown]
  - Papilloedema [Recovering/Resolving]
  - Off label use [Unknown]
  - Retinal disorder [Unknown]
